FAERS Safety Report 10061057 (Version 2)
Quarter: 2014Q2

REPORT INFORMATION
  Report Type: Spontaneous
  Country: US (occurrence: US)
  Receive Date: 20140405
  Receipt Date: 20140405
  Transmission Date: 20141212
  Serious: Yes (Death)
  Sender: FDA-Public Use
  Company Number: US-GE HEALTHCARE MEDICAL DIAGNOSTICS-OSCN-PR-0904S-0180

PATIENT
  Sex: Female

DRUGS (9)
  1. MAGNEVIST [Suspect]
     Indication: PRODUCT USED FOR UNKNOWN INDICATION
     Route: 042
     Dates: start: 19990210, end: 19990210
  2. MAGNEVIST [Suspect]
     Route: 042
     Dates: start: 19990217, end: 19990217
  3. MAGNEVIST [Suspect]
     Route: 042
     Dates: start: 19990304, end: 19990304
  4. MAGNEVIST [Suspect]
     Route: 042
     Dates: start: 19990320, end: 19990320
  5. MAGNEVIST [Suspect]
     Route: 042
     Dates: start: 19990328, end: 19990328
  6. MAGNEVIST [Suspect]
     Route: 042
     Dates: start: 19990504, end: 19990504
  7. MAGNEVIST [Suspect]
     Route: 042
     Dates: start: 19990618, end: 19990618
  8. MAGNEVIST [Suspect]
     Route: 042
     Dates: start: 20021212, end: 20021212
  9. MAGNEVIST [Suspect]
     Route: 042
     Dates: start: 20040618, end: 20040618

REACTIONS (1)
  - Nephrogenic systemic fibrosis [Fatal]
